FAERS Safety Report 20541146 (Version 1)
Quarter: 2022Q1

REPORT INFORMATION
  Report Type: Spontaneous
  Country: DE (occurrence: DE)
  Receive Date: 20220302
  Receipt Date: 20220302
  Transmission Date: 20220423
  Serious: No
  Sender: FDA-Public Use
  Company Number: DE-LUPIN PHARMACEUTICALS INC.-2022-02752

PATIENT
  Age: 41 Year
  Sex: Female

DRUGS (8)
  1. AZITHROMYCIN [Suspect]
     Active Substance: AZITHROMYCIN
     Indication: Mastitis bacterial
     Dosage: UNK
     Route: 065
     Dates: start: 201804
  2. AZITHROMYCIN [Suspect]
     Active Substance: AZITHROMYCIN
     Indication: Streptococcus test positive
  3. AZITHROMYCIN [Suspect]
     Active Substance: AZITHROMYCIN
     Indication: Antibiotic therapy
  4. CLINDAMYCIN [Suspect]
     Active Substance: CLINDAMYCIN
     Indication: Antibiotic therapy
     Dosage: 600 MILLIGRAM, TID
     Route: 042
     Dates: start: 20180412, end: 20180416
  5. CLINDAMYCIN [Suspect]
     Active Substance: CLINDAMYCIN
     Indication: Mastitis bacterial
     Dosage: UNK
     Route: 048
     Dates: start: 201804, end: 20180503
  6. CLINDAMYCIN [Suspect]
     Active Substance: CLINDAMYCIN
     Indication: Streptococcus test positive
  7. IBUPROFEN [Suspect]
     Active Substance: IBUPROFEN
     Indication: Mastitis bacterial
     Dosage: 600 MILLIGRAM, QID
     Route: 065
     Dates: start: 201804
  8. IBUPROFEN [Suspect]
     Active Substance: IBUPROFEN
     Indication: Streptococcus test positive

REACTIONS (1)
  - Exposure via breast milk [Unknown]
